FAERS Safety Report 20611823 (Version 1)
Quarter: 2022Q1

REPORT INFORMATION
  Report Type: Spontaneous
  Country: BA (occurrence: BA)
  Receive Date: 20220318
  Receipt Date: 20220318
  Transmission Date: 20220423
  Serious: Yes (Death, Other)
  Sender: FDA-Public Use
  Company Number: BA-009507513-2203BIH004299

PATIENT
  Age: 38 Year
  Sex: Female

DRUGS (1)
  1. KEYTRUDA [Suspect]
     Active Substance: PEMBROLIZUMAB
     Indication: Metastatic malignant melanoma
     Dosage: 3 CYCLES, CYCLICAL
     Dates: start: 20190603

REACTIONS (2)
  - Malignant neoplasm progression [Fatal]
  - Therapy partial responder [Unknown]

NARRATIVE: CASE EVENT DATE: 20190624
